FAERS Safety Report 14979997 (Version 1)
Quarter: 2018Q2

REPORT INFORMATION
  Report Type: Spontaneous
  Country: US (occurrence: US)
  Receive Date: 20180515
  Receipt Date: 20180515
  Transmission Date: 20180711
  Serious: No
  Sender: FDA-Public Use
  Company Number: None

PATIENT
  Age: 47 Year

DRUGS (1)
  1. HUMIRA [Suspect]
     Active Substance: ADALIMUMAB
     Indication: PSORIASIS
     Dosage: ?          OTHER ROUTE:INJECTION?
     Dates: start: 20171003, end: 20180518

REACTIONS (3)
  - Condition aggravated [None]
  - Infection [None]
  - Rash [None]

NARRATIVE: CASE EVENT DATE: 20180514
